FAERS Safety Report 19480799 (Version 2)
Quarter: 2022Q1

REPORT INFORMATION
  Report Type: Report from Study
  Country: US (occurrence: None)
  Receive Date: 20210701
  Receipt Date: 20220302
  Transmission Date: 20220423
  Serious: Yes (Other)
  Sender: FDA-Public Use
  Company Number: US-ROCHE-2857698

PATIENT
  Age: 60 Year
  Sex: Female
  Weight: 70.3 kg

DRUGS (3)
  1. OBINUTUZUMAB [Suspect]
     Active Substance: OBINUTUZUMAB
     Indication: Chronic lymphocytic leukaemia
     Dosage: TOTAL DOSE ADMINISTERED THIS COURSE: 1000 MG?ON 26/MAY/2021, LAST ADMINISTERED DATE?100 MG IV ON DAY
     Route: 042
     Dates: start: 20210303
  2. VENETOCLAX [Suspect]
     Active Substance: VENETOCLAX
     Indication: Chronic lymphocytic leukaemia
     Dosage: TOTAL DOSE ADMINISTERED: 3200 MG?03/JUN/2021, LAST ADMINISTERED DATE?20 MG PO QD DAYS 1-7 CYCLE 3 50
     Route: 065
     Dates: start: 20210428
  3. IBRUTINIB [Suspect]
     Active Substance: IBRUTINIB
     Indication: Chronic lymphocytic leukaemia
     Dosage: 420 MG PO QD ON DAYS 1-28, CYCLES 1-19?TOTAL DOSE ADMINISTERED THIS COURSE: 3360 MG?LAST ADMINISTERE
     Route: 048
     Dates: start: 20210303

REACTIONS (1)
  - Neutrophil count decreased [Recovered/Resolved]

NARRATIVE: CASE EVENT DATE: 20210603
